FAERS Safety Report 6977881-0 (Version None)
Quarter: 2010Q3

REPORT INFORMATION
  Report Type: 
  Country: None (occurrence: None)
  Receive Date: 20100913
  Receipt Date: 20100908
  Transmission Date: 20110219
  Serious: No
  Sender: FDA-Public Use
  Company Number: US-BIOGENIDEC-2010BI031165

PATIENT
  Age: 53 Year
  Sex: Female

DRUGS (1)
  1. AVONEX [Suspect]
     Indication: MULTIPLE SCLEROSIS
     Route: 030
     Dates: start: 20080630

REACTIONS (6)
  - ASTHENIA [None]
  - DECREASED APPETITE [None]
  - EYELID DISORDER [None]
  - FEELING DRUNK [None]
  - MYALGIA [None]
  - PARAESTHESIA [None]
